FAERS Safety Report 18014607 (Version 1)
Quarter: 2020Q3

REPORT INFORMATION
  Report Type: Spontaneous
  Country: US (occurrence: US)
  Receive Date: 20200713
  Receipt Date: 20200713
  Transmission Date: 20201103
  Serious: Yes (Hospitalization)
  Sender: FDA-Public Use
  Company Number: None

PATIENT
  Sex: Female

DRUGS (19)
  1. METOPROLOL TARTRATE. [Concomitant]
     Active Substance: METOPROLOL TARTRATE
  2. TACROLIMUS. [Concomitant]
     Active Substance: TACROLIMUS
  3. ELIQUIS [Concomitant]
     Active Substance: APIXABAN
  4. ITRACONAZOLE. [Concomitant]
     Active Substance: ITRACONAZOLE
  5. PREDNISONE. [Concomitant]
     Active Substance: PREDNISONE
  6. DEXILANT [Concomitant]
     Active Substance: DEXLANSOPRAZOLE
  7. LEVOXYL [Concomitant]
     Active Substance: LEVOTHYROXINE SODIUM
  8. PREMARIN [Concomitant]
     Active Substance: ESTROGENS, CONJUGATED
  9. VITAMIN D [Concomitant]
     Active Substance: VITAMIN D NOS
  10. DRONABINOL. [Concomitant]
     Active Substance: DRONABINOL
  11. PROGRAF [Concomitant]
     Active Substance: TACROLIMUS
  12. FOLIC ACID. [Concomitant]
     Active Substance: FOLIC ACID
  13. MYCOPHENOLIC [Suspect]
     Active Substance: MYCOPHENOLIC ACID
     Indication: RENAL TRANSPLANT
     Route: 048
     Dates: start: 20181220
  14. ASPIRIN. [Concomitant]
     Active Substance: ASPIRIN
  15. BRINLITA [Concomitant]
  16. ALLOPURINOL. [Concomitant]
     Active Substance: ALLOPURINOL
  17. COUMADIN [Concomitant]
     Active Substance: WARFARIN SODIUM
  18. SULFAMETHAZ [Concomitant]
  19. PLAVIX [Concomitant]
     Active Substance: CLOPIDOGREL BISULFATE

REACTIONS (2)
  - Sepsis [None]
  - Therapy interrupted [None]
